FAERS Safety Report 18248392 (Version 1)
Quarter: 2020Q3

REPORT INFORMATION
  Report Type: Report from Study
  Country: DE (occurrence: DE)
  Receive Date: 20200909
  Receipt Date: 20200909
  Transmission Date: 20201103
  Serious: Yes (Hospitalization)
  Sender: FDA-Public Use
  Company Number: DE-JNJFOC-20200201053

PATIENT
  Age: 17 Year
  Sex: Female
  Weight: 61.1 kg

DRUGS (3)
  1. 5?ASA [Concomitant]
     Active Substance: MESALAMINE
  2. INFLIXIMAB, RECOMBINANT [Suspect]
     Active Substance: INFLIXIMAB
     Indication: INFLAMMATORY BOWEL DISEASE
     Route: 042
     Dates: start: 20150615, end: 20161130
  3. ENTYVIO [Concomitant]
     Active Substance: VEDOLIZUMAB

REACTIONS (1)
  - Faecal calprotectin increased [Recovered/Resolved]

NARRATIVE: CASE EVENT DATE: 20191220
